FAERS Safety Report 7407302-5 (Version None)
Quarter: 2011Q2

REPORT INFORMATION
  Report Type: 
  Country: None (occurrence: None)
  Receive Date: 20110411
  Receipt Date: 20110328
  Transmission Date: 20111010
  Serious: Yes (Other)
  Sender: FDA-Public Use
  Company Number: PHHY2011CA26525

PATIENT
  Sex: Female

DRUGS (1)
  1. ILARIS [Suspect]
     Dosage: 150 MG,
     Route: 058

REACTIONS (2)
  - PSORIASIS [None]
  - INFECTION [None]
